FAERS Safety Report 9745767 (Version 1)
Quarter: 2013Q4

REPORT INFORMATION
  Report Type: Spontaneous
  Country: US (occurrence: None)
  Receive Date: 20131206
  Receipt Date: 20131206
  Transmission Date: 20140711
  Serious: No
  Sender: FDA-Public Use
  Company Number: None

PATIENT
  Age: 81 Year
  Sex: Female

DRUGS (1)
  1. ENBREL 50MG [Suspect]
     Indication: PRODUCT USED FOR UNKNOWN INDICATION
     Dosage: 50MG, WEEKLY, SUBCUTANEOUSLY
     Route: 058
     Dates: start: 20130715, end: 20131204

REACTIONS (2)
  - Weight decreased [None]
  - Haematochezia [None]
